FAERS Safety Report 8843886 (Version 2)
Quarter: 2012Q4

REPORT INFORMATION
  Report Type: 
  Country: US (occurrence: US)
  Receive Date: 20121016
  Receipt Date: 20121126
  Transmission Date: 20130627
  Serious: Yes (Hospitalization, Other)
  Sender: FDA-Public Use
  Company Number: US-BAYER-2012-106170

PATIENT
  Age: 37 Year
  Sex: Female
  Weight: 112.93 kg

DRUGS (10)
  1. BETASERON [Suspect]
  2. ASPIRIN [Concomitant]
     Indication: CORONARY ARTERY DISEASE
     Dosage: Daily dose 325mg
  3. LISINOPRIL [Concomitant]
     Indication: HYPERTENSION
     Dosage: Daily dose 5mg
  4. LISINOPRIL [Concomitant]
     Indication: MYOCARDIAL INFARCTION
  5. LISINOPRIL [Concomitant]
     Indication: CORONARY ARTERY DISEASE
  6. LOPRESOR [Concomitant]
     Indication: MYOCARDIAL INFARCTION
     Dosage: 0.5 DF, BID
  7. LOPRESOR [Concomitant]
     Indication: CORONARY ARTERY DISEASE
  8. PRAVASTATIN [Concomitant]
     Indication: MYOCARDIAL INFARCTION
     Dosage: Daily dose 40mg
  9. PRAVASTATIN [Concomitant]
     Indication: CORONARY ARTERY DISEASE
  10. PRAVASTATIN [Concomitant]
     Indication: HYPERLIPIDEMIA

REACTIONS (4)
  - Myocardial infarction [Recovered/Resolved]
  - Heart injury [Recovered/Resolved]
  - Chest pain [None]
  - Coronary artery disease [None]
